FAERS Safety Report 8795536 (Version 2)
Quarter: 2013Q3

REPORT INFORMATION
  Report Type: Spontaneous
  Country: GB (occurrence: GB)
  Receive Date: 20120917
  Receipt Date: 20130930
  Transmission Date: 20140515
  Serious: Yes (Hospitalization, Disabling, Other)
  Sender: FDA-Public Use
  Company Number: GB-EISAI INC-E2090-02305-SPO-GB

PATIENT
  Age: 48 Year
  Sex: Female

DRUGS (4)
  1. ZONEGRAN [Suspect]
     Indication: CONVULSION
     Route: 048
     Dates: start: 20120801, end: 20120816
  2. PHENYTOIN [Interacting]
     Indication: PRODUCT USED FOR UNKNOWN INDICATION
     Route: 048
  3. GABAPENTIN [Concomitant]
     Route: 048
  4. KEPPRA [Concomitant]
     Route: 048

REACTIONS (4)
  - Anticonvulsant drug level increased [Recovered/Resolved]
  - Mobility decreased [Recovered/Resolved]
  - Agitation [Recovered/Resolved]
  - Potentiating drug interaction [Unknown]
